FAERS Safety Report 5068589-X (Version None)
Quarter: 2006Q3

REPORT INFORMATION
  Report Type: 
  Country: None (occurrence: None)
  Receive Date: 20060802
  Receipt Date: 20051215
  Transmission Date: 20061208
  Serious: No
  Sender: FDA-Public Use
  Company Number: US-BRISTOL-MYERS SQUIBB COMPANY-13216866

PATIENT
  Age: 56 Year
  Sex: Female

DRUGS (6)
  1. COUMADIN [Suspect]
     Indication: BLOOD VISCOSITY INCREASED
     Dosage: 5 MG DAILY ON 11/28, DOSE INCREASED TO 10 MG BETWEEN 11/28-12/14, THEN INCREASED TO 15 MG DAILY
     Dates: start: 20051128
  2. MAGNESIUM OXIDE [Concomitant]
  3. POTASSIUM CHLORIDE [Concomitant]
  4. PROTONIX [Concomitant]
  5. FUROSEMIDE [Concomitant]
  6. ALBUTEROL [Concomitant]
     Route: 055

REACTIONS (1)
  - DRUG INEFFECTIVE [None]
